FAERS Safety Report 21969706 (Version 6)
Quarter: 2024Q3

REPORT INFORMATION
  Report Type: Spontaneous
  Country: JP (occurrence: JP)
  Receive Date: 20230208
  Receipt Date: 20240701
  Transmission Date: 20241017
  Serious: Yes (Death, Other)
  Sender: JAZZ
  Company Number: JP-JAZZ-2023-JP-003073

PATIENT
  Age: 58 Year
  Sex: Male
  Weight: 84.4 kg

DRUGS (6)
  1. DEFITELIO [Suspect]
     Active Substance: DEFIBROTIDE SODIUM
     Indication: Venoocclusive liver disease
     Dosage: 6.25 MILLIGRAM/KILOGRAM, QD
     Route: 042
     Dates: start: 20220909, end: 2022
  2. DEFITELIO [Suspect]
     Active Substance: DEFIBROTIDE SODIUM
     Dosage: 6.25 MILLIGRAM/KILOGRAM, QD
     Route: 042
     Dates: start: 2022, end: 20221020
  3. FOSCAVIR [Concomitant]
     Active Substance: FOSCARNET SODIUM
     Indication: Product used for unknown indication
  4. FENTANYL [Concomitant]
     Active Substance: FENTANYL\FENTANYL CITRATE
     Indication: Product used for unknown indication
  5. URSODIOL [Concomitant]
     Active Substance: URSODIOL
     Indication: Product used for unknown indication
  6. FUROSEMIDE [Concomitant]
     Active Substance: FUROSEMIDE
     Indication: Product used for unknown indication

REACTIONS (9)
  - Renal impairment [Fatal]
  - Organising pneumonia [Fatal]
  - Pneumonia legionella [Fatal]
  - Metabolic encephalopathy [Fatal]
  - Hypoxia [Fatal]
  - Venoocclusive liver disease [Fatal]
  - Liver disorder [Fatal]
  - Renal failure [Not Recovered/Not Resolved]
  - Altered state of consciousness [Not Recovered/Not Resolved]

NARRATIVE: CASE EVENT DATE: 20220101
